FAERS Safety Report 9455558 (Version 3)
Quarter: 2014Q1

REPORT INFORMATION
  Report Type: Spontaneous
  Country: US (occurrence: US)
  Receive Date: 20130813
  Receipt Date: 20140321
  Transmission Date: 20141002
  Serious: Yes (Death, Hospitalization, Other)
  Sender: FDA-Public Use
  Company Number: US-PFIZER INC-2013129801

PATIENT
  Age: 67 Year
  Sex: Male
  Weight: 57 kg

DRUGS (10)
  1. DILANTIN KAPSEAL [Suspect]
     Indication: CONVULSION
     Dosage: 100 MG, 3X/DAY (EVERY 8 HOURS)
     Route: 048
     Dates: start: 20120103, end: 20120209
  2. PREVACID [Concomitant]
     Indication: GASTROOESOPHAGEAL REFLUX DISEASE
     Dosage: 30 MG, 1X/DAY
  3. ZANTAC [Concomitant]
     Indication: GASTROOESOPHAGEAL REFLUX DISEASE
     Dosage: 150 MG, 2X/DAY
  4. VITAMIN D [Concomitant]
     Dosage: 1000 IU, 1X/DAY
  5. DOXAZOSIN [Concomitant]
     Indication: HYPERTENSION
     Dosage: 1 MG, 1X/DAY
     Route: 048
  6. LANTUS [Concomitant]
     Indication: DIABETES MELLITUS
     Dosage: UNK
  7. FOSAMAX [Concomitant]
     Indication: OSTEOPOROSIS
     Dosage: 10 MG, 1X/DAY
  8. FENOFIBRATE [Concomitant]
     Indication: HYPERCHOLESTEROLAEMIA
     Dosage: 160 MG, 1X/DAY
  9. ZOCOR [Concomitant]
     Indication: HYPERLIPIDAEMIA
     Dosage: 40 MG, 1X/DAY (EVERY NIGHT AT BED TIME)
  10. PLAVIX [Concomitant]
     Indication: CEREBROVASCULAR ACCIDENT
     Dosage: 75 MG, 1X/DAY

REACTIONS (3)
  - Stevens-Johnson syndrome [Fatal]
  - Toxic epidermal necrolysis [Fatal]
  - Multi-organ failure [Fatal]
